FAERS Safety Report 8162719-9 (Version None)
Quarter: 2012Q1

REPORT INFORMATION
  Report Type: 
  Country: None (occurrence: None)
  Receive Date: 20120224
  Receipt Date: 20120215
  Transmission Date: 20120608
  Serious: Yes (Hospitalization, Disabling)
  Sender: FDA-Public Use
  Company Number: US-JNJFOC-20090905172

PATIENT
  Sex: Female
  Weight: 65.32 kg

DRUGS (2)
  1. TYLENOL COLD HEAD CONGESTION NIGHTTIME COOL BURST [Suspect]
     Indication: SINUS HEADACHE
     Dates: start: 20090204
  2. TYLENOL COLD HEAD CONGESTION NIGHTTIME COOL BURST [Suspect]
     Indication: NASOPHARYNGITIS
     Dates: start: 20090204

REACTIONS (1)
  - HAEMORRHAGIC STROKE [None]
